FAERS Safety Report 9707298 (Version 1)
Quarter: 2013Q4

REPORT INFORMATION
  Report Type: Spontaneous
  Country: US (occurrence: US)
  Receive Date: 20131125
  Receipt Date: 20131125
  Transmission Date: 20140711
  Serious: No
  Sender: FDA-Public Use
  Company Number: US-GLAXOSMITHKLINE-A0999286A

PATIENT
  Age: 78 Year
  Sex: Female

DRUGS (12)
  1. FLOVENT [Suspect]
     Indication: ASTHMA
     Dosage: 250MCG VARIABLE DOSE
     Route: 055
  2. ALBUTEROL [Concomitant]
     Route: 065
  3. HCTZ [Concomitant]
  4. FLUTICASONE [Concomitant]
     Route: 045
  5. FENTANYL [Concomitant]
     Indication: PAIN
     Route: 062
  6. CLARITIN [Concomitant]
  7. VITAMIN D [Concomitant]
  8. MAGNESIUM [Concomitant]
  9. CALCIUM [Concomitant]
  10. CENTRUM SILVER [Concomitant]
  11. STOOL SOFTENER [Concomitant]
  12. SUDAFED [Concomitant]

REACTIONS (4)
  - Nasopharyngitis [Unknown]
  - Lacrimation increased [Unknown]
  - Malaise [Unknown]
  - Pain in extremity [Unknown]
